FAERS Safety Report 18185906 (Version 1)
Quarter: 2020Q3

REPORT INFORMATION
  Report Type: Spontaneous
  Country: US (occurrence: US)
  Receive Date: 20200821
  Receipt Date: 20200821
  Transmission Date: 20201103
  Serious: Yes (Hospitalization)
  Sender: FDA-Public Use
  Company Number: None

PATIENT
  Age: 37 Year
  Sex: Female

DRUGS (5)
  1. CAPECITABINE 500MG [Suspect]
     Active Substance: CAPECITABINE
     Indication: BREAST CANCER
     Dosage: ?          OTHER FREQUENCY:BID X 14D?7D OFF;?
     Route: 048
     Dates: start: 20200520
  2. HYDROCO/APAP [Concomitant]
     Active Substance: ACETAMINOPHEN\HYDROCODONE
  3. DULOXETINE. [Concomitant]
     Active Substance: DULOXETINE
  4. MIDODINE [Concomitant]
  5. FEROSUL [Concomitant]
     Active Substance: FERROUS SULFATE

REACTIONS (2)
  - Therapy interrupted [None]
  - COVID-19 [None]
